FAERS Safety Report 7866150-2 (Version None)
Quarter: 2011Q4

REPORT INFORMATION
  Report Type: 
  Country: None (occurrence: None)
  Receive Date: 20111028
  Receipt Date: 20110502
  Transmission Date: 20120403
  Serious: No
  Sender: FDA-Public Use
  Company Number: US-GLAXOSMITHKLINE-A0925343A

PATIENT
  Sex: Female

DRUGS (4)
  1. SIMVASTATIN [Concomitant]
  2. SYNTHROID [Concomitant]
  3. ADVAIR DISKUS 100/50 [Suspect]
     Indication: ASTHMA
     Dosage: 1PUFF AS REQUIRED
     Route: 055
  4. IBUPROFEN [Concomitant]

REACTIONS (12)
  - CANDIDIASIS [None]
  - HEART RATE INCREASED [None]
  - DIZZINESS [None]
  - NERVOUSNESS [None]
  - NIGHT SWEATS [None]
  - ANXIETY [None]
  - INFLUENZA LIKE ILLNESS [None]
  - RESPIRATORY DISORDER [None]
  - DISTURBANCE IN ATTENTION [None]
  - IRRITABILITY [None]
  - COUGH [None]
  - WHEEZING [None]
